FAERS Safety Report 14739981 (Version 1)
Quarter: 2018Q2

REPORT INFORMATION
  Report Type: Spontaneous
  Country: US (occurrence: US)
  Receive Date: 20180404
  Receipt Date: 20180404
  Transmission Date: 20180711
  Serious: No
  Sender: FDA-Public Use
  Company Number: None

PATIENT
  Age: 76 Year
  Sex: Male

DRUGS (1)
  1. CAPECITABINE TAB 500 MG [Suspect]
     Active Substance: CAPECITABINE

REACTIONS (9)
  - Hypoaesthesia [None]
  - Dysuria [None]
  - Depression [None]
  - Drug dose omission [None]
  - Skin reaction [None]
  - Skin discolouration [None]
  - Diarrhoea [None]
  - Abdominal pain [None]
  - Rectal tenesmus [None]

NARRATIVE: CASE EVENT DATE: 20180404
